FAERS Safety Report 11343115 (Version 3)
Quarter: 2015Q3

REPORT INFORMATION
  Report Type: Spontaneous
  Country: CH (occurrence: CH)
  Receive Date: 20150806
  Receipt Date: 20150825
  Transmission Date: 20151125
  Serious: Yes (Other)
  Sender: FDA-Public Use
  Company Number: CH-ROCHE-1618257

PATIENT
  Sex: Female

DRUGS (6)
  1. ACIDUM FOLICUM [Concomitant]
     Active Substance: FOLIC ACID
  2. PANTOPRAZOLE SODIUM. [Concomitant]
     Active Substance: PANTOPRAZOLE SODIUM
  3. MABTHERA [Suspect]
     Active Substance: RITUXIMAB
     Indication: RHEUMATOID ARTHRITIS
     Route: 042
     Dates: start: 2007
  4. CANDESARTAN [Concomitant]
     Active Substance: CANDESARTAN
  5. INFLAMAC [Concomitant]
     Active Substance: DICLOFENAC SODIUM
  6. SPASMO-URGENIN [Concomitant]
     Active Substance: HERBALS\TROSPIUM

REACTIONS (2)
  - Tooth loss [Unknown]
  - Periodontitis [Unknown]
